FAERS Safety Report 9812331 (Version 1)
Quarter: 2014Q1

REPORT INFORMATION
  Report Type: Spontaneous
  Country: US (occurrence: US)
  Receive Date: 20140113
  Receipt Date: 20140113
  Transmission Date: 20141002
  Serious: Yes (Life-Threatening)
  Sender: FDA-Public Use
  Company Number: US-ROCHE-1329875

PATIENT
  Sex: Female

DRUGS (1)
  1. XOLAIR [Suspect]
     Indication: ASTHMA
     Route: 058
     Dates: start: 201308

REACTIONS (6)
  - Anaphylactic reaction [Unknown]
  - Pruritus generalised [Unknown]
  - Tachypnoea [Unknown]
  - Hypoxia [Unknown]
  - Wheezing [Unknown]
  - Pruritus [Unknown]
